FAERS Safety Report 21930908 (Version 2)
Quarter: 2023Q2

REPORT INFORMATION
  Report Type: Spontaneous
  Country: US (occurrence: US)
  Receive Date: 20230131
  Receipt Date: 20230501
  Transmission Date: 20230722
  Serious: No
  Sender: FDA-Public Use
  Company Number: US-IMMUNOCORE, LTD-2023-IMC-001367

PATIENT
  Age: 71 Year
  Sex: Female

DRUGS (2)
  1. KIMMTRAK [Suspect]
     Active Substance: TEBENTAFUSP-TEBN
     Indication: Product used for unknown indication
     Dosage: UNK, 3 DOSE
  2. KIMMTRAK [Suspect]
     Active Substance: TEBENTAFUSP-TEBN
     Dosage: 30 MICROGRAM, SINGLE, DAY 8
     Route: 042
     Dates: start: 20230117, end: 20230117

REACTIONS (2)
  - Rash maculo-papular [Recovering/Resolving]
  - Erythema [Unknown]

NARRATIVE: CASE EVENT DATE: 20230117
